FAERS Safety Report 12348240 (Version 2)
Quarter: 2016Q2

REPORT INFORMATION
  Report Type: Spontaneous
  Country: ES (occurrence: ES)
  Receive Date: 20160509
  Receipt Date: 20160518
  Transmission Date: 20160815
  Serious: Yes (Death, Life-Threatening, Other)
  Sender: FDA-Public Use
  Company Number: ES-PFIZER INC-2016248219

PATIENT
  Sex: Male
  Weight: .75 kg

DRUGS (3)
  1. IBUPROFEN. [Suspect]
     Active Substance: IBUPROFEN
     Indication: PATENT DUCTUS ARTERIOSUS
     Dosage: 10 MG/KG BODY WEIGHT FIRST DOSE
  2. IBUPROFEN. [Suspect]
     Active Substance: IBUPROFEN
     Dosage: 2 DOSES OF 5 MG/KG GIVEN 24 HOURS APART
  3. IBUPROFEN LYSINATE [Suspect]
     Active Substance: IBUPROFEN LYSINE
     Indication: PATENT DUCTUS ARTERIOSUS
     Dosage: THREE DOSES

REACTIONS (2)
  - Drug ineffective for unapproved indication [Unknown]
  - Pulmonary hypertension [Fatal]
